FAERS Safety Report 4946873-5 (Version None)
Quarter: 2006Q1

REPORT INFORMATION
  Report Type: 
  Country: None (occurrence: None)
  Receive Date: 20060317
  Receipt Date: 20060228
  Transmission Date: 20060701
  Serious: Yes (Hospitalization)
  Sender: FDA-Public Use
  Company Number: FR-ABBOTT-06R-056-0326745-00

PATIENT
  Sex: Male
  Weight: 9 kg

DRUGS (2)
  1. PEDIAZOLE [Suspect]
     Indication: OTITIS MEDIA ACUTE
     Dosage: 1 DF/KG TID
     Route: 048
     Dates: start: 20060227, end: 20060301
  2. PARACETAMOL [Concomitant]
     Indication: PYREXIA
     Dosage: 1DF/KG 2-3 TIMES DAY
     Route: 048
     Dates: start: 20060227, end: 20060228

REACTIONS (2)
  - CONVULSION [None]
  - EPILEPSY [None]
